FAERS Safety Report 5696284-2 (Version None)
Quarter: 2008Q2

REPORT INFORMATION
  Report Type: 
  Country: None (occurrence: None)
  Receive Date: 20080407
  Receipt Date: 20080331
  Transmission Date: 20081010
  Serious: Yes (Hospitalization, Other)
  Sender: FDA-Public Use
  Company Number: US-ELI_LILLY_AND_COMPANY-US200803006914

PATIENT
  Sex: Female

DRUGS (4)
  1. FORTEO [Suspect]
     Indication: OSTEOPOROSIS
     Dates: start: 20071201
  2. GLUCOSAMINE [Concomitant]
  3. THYROID TAB [Concomitant]
  4. VITAMINS [Concomitant]

REACTIONS (2)
  - FALL [None]
  - HIP FRACTURE [None]
